FAERS Safety Report 4372944-0 (Version None)
Quarter: 2004Q2

REPORT INFORMATION
  Report Type: 
  Country: None (occurrence: None)
  Receive Date: 20040603
  Receipt Date: 20040526
  Transmission Date: 20050107
  Serious: Yes (Hospitalization)
  Sender: FDA-Public Use
  Company Number: 2004215614US

PATIENT
  Sex: Female

DRUGS (2)
  1. CAMPTOSAR [Suspect]
     Dates: start: 20040520
  2. ERBITUX (CETUXIMAB) () [Suspect]

REACTIONS (1)
  - PANCREATITIS ACUTE [None]
